FAERS Safety Report 16010168 (Version 2)
Quarter: 2019Q1

REPORT INFORMATION
  Report Type: Report from Study
  Country: JP (occurrence: JP)
  Receive Date: 20190225
  Receipt Date: 20190311
  Transmission Date: 20190418
  Serious: Yes (Hospitalization, Other)
  Sender: FDA-Public Use
  Company Number: JP-GLAXOSMITHKLINE-JP2019022845

PATIENT
  Age: 9 Decade
  Sex: Male

DRUGS (25)
  1. MEPOLIZUMAB [Suspect]
     Active Substance: MEPOLIZUMAB
     Dosage: 100 MG, QD
     Route: 058
     Dates: start: 20180621, end: 20180621
  2. MEPOLIZUMAB [Suspect]
     Active Substance: MEPOLIZUMAB
     Dosage: 100 MG, QD
     Route: 058
     Dates: start: 20180719, end: 20180719
  3. MEPOLIZUMAB [Suspect]
     Active Substance: MEPOLIZUMAB
     Dosage: 100 MG, QD
     Route: 058
     Dates: start: 20181108, end: 20181108
  4. AMLODIPINE BESILATE [Concomitant]
     Active Substance: AMLODIPINE BESYLATE
     Dosage: UNK
  5. LEVOFLOXACIN OPHTHALMIC SOLUTION [Concomitant]
     Active Substance: LEVOFLOXACIN
     Dosage: UNK
  6. MEPOLIZUMAB [Suspect]
     Active Substance: MEPOLIZUMAB
     Dosage: 100 MG, QD
     Route: 058
     Dates: start: 20180222, end: 20180222
  7. MEPOLIZUMAB [Suspect]
     Active Substance: MEPOLIZUMAB
     Dosage: 100 MG, QD
     Route: 058
     Dates: start: 20180524, end: 20180524
  8. CASODEX [Concomitant]
     Active Substance: BICALUTAMIDE
     Dosage: UNK
  9. SERETIDE [Suspect]
     Active Substance: FLUTICASONE PROPIONATE\SALMETEROL XINAFOATE
     Indication: ASTHMA
     Dosage: 500 ?G, 1D
     Route: 055
  10. VEGAMOX OPHTHALMIC SOLUTION [Concomitant]
     Dosage: UNK
  11. MEPOLIZUMAB [Suspect]
     Active Substance: MEPOLIZUMAB
     Dosage: 100 MG, QD
     Route: 058
     Dates: start: 20180426, end: 20180426
  12. MEPOLIZUMAB [Suspect]
     Active Substance: MEPOLIZUMAB
     Dosage: 100 MG, QD
     Route: 058
     Dates: start: 20180816, end: 20180816
  13. MEPOLIZUMAB [Suspect]
     Active Substance: MEPOLIZUMAB
     Dosage: 100 MG, QD
     Route: 058
     Dates: start: 20180913, end: 20180913
  14. MEPOLIZUMAB [Suspect]
     Active Substance: MEPOLIZUMAB
     Dosage: 100 MG, QD
     Route: 058
     Dates: start: 20181011, end: 20181011
  15. LEUPLIN [Concomitant]
     Active Substance: LEUPROLIDE ACETATE
     Dosage: UNK
  16. MEPOLIZUMAB [Suspect]
     Active Substance: MEPOLIZUMAB
     Indication: ASTHMA
     Dosage: 100 MG, QD
     Route: 058
     Dates: start: 20171130, end: 20171130
  17. MONTELUKAST OD [Concomitant]
     Indication: ASTHMA
     Dosage: UNK
  18. TAMSULOSIN HYDROCHLORIDE OD [Concomitant]
     Active Substance: TAMSULOSIN HYDROCHLORIDE
     Dosage: UNK
  19. SPIRIVA [Concomitant]
     Active Substance: TIOTROPIUM BROMIDE MONOHYDRATE
     Indication: ASTHMA
     Dosage: UNK
  20. RABEPRAZOLE NA TABLETS [Concomitant]
     Dosage: UNK
  21. MEPOLIZUMAB [Suspect]
     Active Substance: MEPOLIZUMAB
     Dosage: 100 MG, QD
     Route: 058
     Dates: start: 20171228, end: 20171228
  22. MEPOLIZUMAB [Suspect]
     Active Substance: MEPOLIZUMAB
     Dosage: 100 MG, QD
     Route: 058
     Dates: start: 20180125, end: 20180125
  23. MEPOLIZUMAB [Suspect]
     Active Substance: MEPOLIZUMAB
     Dosage: 100 MG, QD
     Route: 058
     Dates: start: 20180322, end: 20180322
  24. THEO-DUR [Concomitant]
     Active Substance: THEOPHYLLINE ANHYDROUS
     Indication: ASTHMA
     Dosage: UNK
  25. HYALEIN OPHTHALMIC SOLUTION [Concomitant]
     Dosage: UNK

REACTIONS (2)
  - Asthma [Recovered/Resolved]
  - Pneumonia [Recovered/Resolved]

NARRATIVE: CASE EVENT DATE: 20180105
